FAERS Safety Report 9281406 (Version 1)
Quarter: 2013Q2

REPORT INFORMATION
  Report Type: Spontaneous
  Country: None (occurrence: None)
  Receive Date: 20130502
  Receipt Date: 20130502
  Transmission Date: 20140414
  Serious: Yes (Other)
  Sender: FDA-Public Use
  Company Number: 2013040123

PATIENT
  Sex: Female

DRUGS (1)
  1. ALLEGODIL AUGENTROPFEN [Suspect]

REACTIONS (1)
  - Hypersensitivity [None]
